FAERS Safety Report 15327764 (Version 1)
Quarter: 2018Q3

REPORT INFORMATION
  Report Type: Spontaneous
  Country: US (occurrence: US)
  Receive Date: 20180828
  Receipt Date: 20180828
  Transmission Date: 20181010
  Serious: Yes (Hospitalization, Other)
  Sender: FDA-Public Use
  Company Number: US-009507513-1808USA010500

PATIENT
  Sex: Female

DRUGS (2)
  1. PNEUMOVAX 23 [Suspect]
     Active Substance: PNEUMOCOCCAL VACCINE, POLYVALENT 23
     Indication: PROPHYLAXIS
  2. JANUVIA [Suspect]
     Active Substance: SITAGLIPTIN PHOSPHATE
     Indication: TYPE 2 DIABETES MELLITUS
     Dosage: 100 MG ONCE DAILY
     Route: 048

REACTIONS (5)
  - Influenza [Not Recovered/Not Resolved]
  - Surgery [Unknown]
  - Ill-defined disorder [Unknown]
  - Adverse event [Unknown]
  - Visual impairment [Unknown]
